FAERS Safety Report 25058495 (Version 1)
Quarter: 2025Q1

REPORT INFORMATION
  Report Type: Spontaneous
  Country: KW (occurrence: KW)
  Receive Date: 20250310
  Receipt Date: 20250310
  Transmission Date: 20250409
  Serious: Yes (Hospitalization)
  Sender: PFIZER
  Company Number: KW-PFIZER INC-PV202500027208

PATIENT
  Age: 45 Year
  Sex: Female

DRUGS (3)
  1. LORLATINIB [Suspect]
     Active Substance: LORLATINIB
     Indication: Non-small cell lung cancer
     Dosage: 100 MG, DAILY
     Dates: start: 202306
  2. LORLATINIB [Suspect]
     Active Substance: LORLATINIB
  3. LORLATINIB [Suspect]
     Active Substance: LORLATINIB

REACTIONS (5)
  - Respiratory distress [Unknown]
  - Dyspnoea [Unknown]
  - Hypercholesterolaemia [Unknown]
  - Arthralgia [Recovering/Resolving]
  - Oedema peripheral [Not Recovered/Not Resolved]
